FAERS Safety Report 6955377-X (Version None)
Quarter: 2010Q3

REPORT INFORMATION
  Report Type: 
  Country: None (occurrence: None)
  Receive Date: 20100830
  Receipt Date: 20100121
  Transmission Date: 20110219
  Serious: No
  Sender: FDA-Public Use
  Company Number: US-MYLANLABS-2010S1001161

PATIENT
  Age: 45 Year
  Sex: Male

DRUGS (2)
  1. LISINOPRIL [Suspect]
     Indication: BLOOD PRESSURE INCREASED
     Route: 048
     Dates: start: 20100118
  2. COUMADIN [Concomitant]
     Indication: THROMBOSIS
     Route: 048

REACTIONS (1)
  - HEART RATE INCREASED [None]
